FAERS Safety Report 10246999 (Version 2)
Quarter: 2014Q2

REPORT INFORMATION
  Report Type: Spontaneous
  Country: DE (occurrence: DE)
  Receive Date: 20140619
  Receipt Date: 20140625
  Transmission Date: 20141212
  Serious: Yes (Hospitalization, Other)
  Sender: FDA-Public Use
  Company Number: DE-009507513-1406DEU005325

PATIENT
  Age: 60 Year
  Sex: Male

DRUGS (2)
  1. ZOCOR 10MG [Suspect]
     Dosage: TOTAL DAILY DOSE: 80MG
     Route: 048
     Dates: start: 2004
  2. INSULIN [Concomitant]
     Indication: DIABETES MELLITUS

REACTIONS (3)
  - Renal failure [Unknown]
  - Gastroplasty [Unknown]
  - Rhabdomyolysis [Unknown]
